FAERS Safety Report 8112462-7 (Version None)
Quarter: 2012Q1

REPORT INFORMATION
  Report Type: 
  Country: None (occurrence: None)
  Receive Date: 20120203
  Receipt Date: 20111223
  Transmission Date: 20120608
  Serious: Yes (Other)
  Sender: FDA-Public Use
  Company Number: BE-PFIZER INC-2011042531

PATIENT
  Age: 58 Year
  Sex: Male
  Weight: 67 kg

DRUGS (5)
  1. EZETIMIBE [Concomitant]
     Dosage: UNK
     Route: 048
     Dates: start: 20100714
  2. VARENICLINE TARTRATE [Interacting]
     Dosage: 1 MG, 2X/DAY
     Route: 048
  3. TENORMIN [Interacting]
     Dosage: 50 MG, 1X/DAY
     Route: 048
     Dates: start: 20030101
  4. VARENICLINE TARTRATE [Suspect]
     Indication: SMOKING CESSATION THERAPY
     Dosage: 0.5 MG, 1X/DAY
     Route: 048
     Dates: start: 20101012
  5. LISINOPRIL [Concomitant]
     Dosage: UNK
     Route: 048
     Dates: start: 20100308

REACTIONS (3)
  - DRUG INTERACTION [None]
  - STRESS [None]
  - PSORIASIS [None]
